FAERS Safety Report 14628515 (Version 1)
Quarter: 2018Q1

REPORT INFORMATION
  Report Type: Report from Study
  Country: None (occurrence: BR)
  Receive Date: 20180313
  Receipt Date: 20180313
  Transmission Date: 20180509
  Serious: Yes (Hospitalization)
  Sender: FDA-Public Use
  Company Number: BR-ABBVIE-18K-020-2281356-00

PATIENT
  Age: 57 Year
  Sex: Female
  Weight: 46 kg

DRUGS (2)
  1. HUMIRA [Suspect]
     Active Substance: ADALIMUMAB
     Indication: RHEUMATOID ARTHRITIS
     Route: 058
     Dates: start: 20150623
  2. EGIDE [Concomitant]
     Indication: MIGRAINE

REACTIONS (6)
  - Blood pressure increased [Recovered/Resolved]
  - Eye disorder [Unknown]
  - Weight decreased [Not Recovered/Not Resolved]
  - Migraine [Recovered/Resolved]
  - Visual impairment [Not Recovered/Not Resolved]
  - Nail disorder [Not Recovered/Not Resolved]

NARRATIVE: CASE EVENT DATE: 2017
